FAERS Safety Report 14795038 (Version 3)
Quarter: 2018Q2

REPORT INFORMATION
  Report Type: Spontaneous
  Country: JP (occurrence: JP)
  Receive Date: 20180423
  Receipt Date: 20180507
  Transmission Date: 20180711
  Serious: Yes (Other)
  Sender: FDA-Public Use
  Company Number: JP-TEVA-2018-JP-884693

PATIENT
  Age: 82 Year
  Sex: Female

DRUGS (2)
  1. ETOPOSIDE. [Suspect]
     Active Substance: ETOPOSIDE
     Indication: CHORIOCARCINOMA
     Dosage: 100 MG/M2 (148 MG/BODY) ON DAYS 1-5 STARTED ON 16TH DAY OF ILLNESS
     Route: 065
  2. CISPLATIN. [Suspect]
     Active Substance: CISPLATIN
     Indication: CHORIOCARCINOMA
     Dosage: 20 MG/M2 (29 MG/BODY) ON DAYS 1-5 STARTED ON 16TH DAY OF ILLNESS
     Route: 065

REACTIONS (7)
  - Febrile neutropenia [Unknown]
  - Haemoglobin decreased [Unknown]
  - Decreased appetite [Unknown]
  - Neutrophil count decreased [Unknown]
  - Nausea [Unknown]
  - Performance status decreased [Unknown]
  - Platelet count decreased [Unknown]
